FAERS Safety Report 6759739-5 (Version None)
Quarter: 2010Q2

REPORT INFORMATION
  Report Type: 
  Country: None (occurrence: None)
  Receive Date: 20100608
  Receipt Date: 20100528
  Transmission Date: 20101027
  Serious: Yes (Other)
  Sender: FDA-Public Use
  Company Number: JP-JNJFOC-20100506444

PATIENT
  Sex: Female

DRUGS (4)
  1. CRAVIT [Suspect]
     Indication: BRONCHITIS
     Route: 048
  2. MUCOTRON [Concomitant]
     Route: 065
  3. SERRAPEPTASE [Concomitant]
     Route: 065
  4. KAMISHOUYOUSAN [Concomitant]
     Indication: MENOPAUSAL SYMPTOMS
     Route: 048

REACTIONS (8)
  - ARTHRALGIA [None]
  - ARTHRITIS [None]
  - BLOOD URINE PRESENT [None]
  - HAEMATURIA [None]
  - JOINT EFFUSION [None]
  - OEDEMA PERIPHERAL [None]
  - PROTEIN URINE PRESENT [None]
  - RESIDUAL URINE [None]
